FAERS Safety Report 6917190-9 (Version None)
Quarter: 2010Q3

REPORT INFORMATION
  Report Type: 
  Country: None (occurrence: None)
  Receive Date: 20100810
  Receipt Date: 20100803
  Transmission Date: 20110219
  Serious: Yes (Life-Threatening, Hospitalization)
  Sender: FDA-Public Use
  Company Number: US-TYCO HEALTHCARE/MALLINCKRODT-T201001600

PATIENT
  Age: 21 Year
  Sex: Female

DRUGS (1)
  1. OPTIRAY 350 [Suspect]
     Indication: COMPUTERISED TOMOGRAM
     Dosage: 125 ML, SINGLE
     Route: 042
     Dates: start: 20100712, end: 20100712

REACTIONS (5)
  - CARDIO-RESPIRATORY ARREST [None]
  - ERYTHEMA [None]
  - PRURITUS [None]
  - THROAT IRRITATION [None]
  - UNRESPONSIVE TO STIMULI [None]
